FAERS Safety Report 8971253 (Version 1)
Quarter: 2012Q4

REPORT INFORMATION
  Report Type: 
  Country: US (occurrence: US)
  Receive Date: 20121218
  Receipt Date: 20121218
  Transmission Date: 20130627
  Serious: No
  Sender: FDA-Public Use
  Company Number: US-BAYER-2012-125728

PATIENT

DRUGS (20)
  1. AVELOX [Suspect]
     Route: 048
  2. ACCURETIC [Concomitant]
     Dosage: 1 UNK, UNK
     Route: 048
  3. ALPRAZOLAM [Concomitant]
     Dosage: 0.5 mg, PRN
     Route: 048
  4. ARTHROTEC [DICLOFENAC SODIUM] [Concomitant]
     Dosage: 1 UNK, UNK
     Route: 048
  5. ASCORBIC ACID [Concomitant]
     Dosage: 500 mg, QD
  6. SYMBICORT [Concomitant]
     Dosage: Inhale 2 puffs in to the lungs, BID
     Route: 045
  7. BUPAP [Concomitant]
     Dosage: 50- 650 mg, UNK, UNK
     Route: 048
  8. CALCIUM [Concomitant]
     Dosage: 1200 mg, QD
     Route: 048
  9. VITAMIN D3 [Concomitant]
     Dosage: 5000 iu, QD
     Route: 048
  10. FLEXERIL [Concomitant]
     Dosage: 1 DF, 3 times daily,PRN
  11. FISH OIL [Concomitant]
     Dosage: 2 g, UNK
     Route: 048
  12. VICODIN [Concomitant]
     Dosage: 1 UNK, UNK
     Route: 048
  13. LIPITOR [Concomitant]
     Dosage: 1 DF, QD
     Route: 048
  14. NEURONTIN [Concomitant]
     Dosage: 1 UNK, UNK
     Route: 048
  15. OXYBUTYNIN [Concomitant]
     Dosage: 5 mg, QD
     Route: 048
  16. POTASSIUM [Concomitant]
     Route: 048
  17. ZOLOFT [Concomitant]
     Dosage: 1 DF, HS
  18. TRICOR [Concomitant]
     Dosage: 1 DF, QD
     Route: 048
  19. VITAMIN B12 [Concomitant]
     Dosage: 1 DF, 4IW
  20. VITAMIN E [Concomitant]
     Dosage: 400 units, daily
     Route: 048

REACTIONS (1)
  - Dermatitis allergic [None]
